FAERS Safety Report 8543229-3 (Version None)
Quarter: 2012Q3

REPORT INFORMATION
  Report Type: 
  Country: None (occurrence: None)
  Receive Date: 20120727
  Receipt Date: 20120720
  Transmission Date: 20120928
  Serious: Yes (Other)
  Sender: FDA-Public Use
  Company Number: US-BAYER-2012-074552

PATIENT
  Sex: Female

DRUGS (2)
  1. MIRENA [Suspect]
  2. MIRENA [Suspect]
     Dosage: 20 MCG/24HR, CONT

REACTIONS (1)
  - VAGINAL HAEMORRHAGE [None]
